FAERS Safety Report 25872658 (Version 3)
Quarter: 2025Q4

REPORT INFORMATION
  Report Type: Report from Study
  Country: EU (occurrence: EU)
  Receive Date: 20251002
  Receipt Date: 20251024
  Transmission Date: 20260117
  Serious: Yes (Death, Hospitalization)
  Sender: ABBVIE
  Company Number: EU-ABBVIE-6486180

PATIENT
  Age: 84 Year
  Sex: Male

DRUGS (2)
  1. FOSCARBIDOPA\FOSLEVODOPA [Suspect]
     Active Substance: FOSCARBIDOPA\FOSLEVODOPA
     Indication: Parkinson^s disease
     Dosage: FIRST ADMIN DATE: SEP 2025
     Route: 058
     Dates: end: 20250927
  2. FOSCARBIDOPA\FOSLEVODOPA [Suspect]
     Active Substance: FOSCARBIDOPA\FOSLEVODOPA
     Dosage: LAST ADMIN DATE: SEP 2025
     Route: 058
     Dates: start: 20250916

REACTIONS (2)
  - Terminal state [Fatal]
  - Impaired gastric emptying [Unknown]

NARRATIVE: CASE EVENT DATE: 20250901
